FAERS Safety Report 9009402 (Version 3)
Quarter: 2013Q1

REPORT INFORMATION
  Report Type: Spontaneous
  Country: PL (occurrence: PL)
  Receive Date: 20130111
  Receipt Date: 20130204
  Transmission Date: 20140127
  Serious: Yes (Life-Threatening, Hospitalization)
  Sender: FDA-Public Use
  Company Number: PL-BAYER-2013-001494

PATIENT
  Age: 35 Year
  Sex: Female

DRUGS (4)
  1. KETOPROFEN (SYSTEMIC FORMULATION) [Suspect]
     Dosage: 15 X 100 MG TABLETS
  2. KLOZAPOL [Suspect]
     Dosage: 30 X 100 MG TABLETS
  3. TORECAN [Suspect]
     Dosage: MORE THAN 10 TABLETS
  4. DIAZEPAM [Suspect]
     Indication: SEDATION

REACTIONS (3)
  - Pulmonary oedema [Recovered/Resolved]
  - Toxicity to various agents [None]
  - Intentional overdose [None]
